FAERS Safety Report 9327927 (Version 1)
Quarter: 2013Q2

REPORT INFORMATION
  Report Type: Spontaneous
  Country: US (occurrence: US)
  Receive Date: 20130604
  Receipt Date: 20130604
  Transmission Date: 20140414
  Serious: Yes (Hospitalization)
  Sender: FDA-Public Use
  Company Number: US-SANOFI-AVENTIS-2012SA041771

PATIENT
  Sex: Female

DRUGS (3)
  1. SOLOSTAR [Suspect]
  2. LANTUS [Suspect]
     Dosage: DOSE:42 UNIT(S)
     Route: 058
  3. HUMALOG [Suspect]
     Dosage: SLIDING SCALE

REACTIONS (3)
  - Investigation [Recovered/Resolved]
  - Wrong drug administered [Recovered/Resolved]
  - Blood glucose increased [Unknown]
